FAERS Safety Report 13069961 (Version 2)
Quarter: 2017Q1

REPORT INFORMATION
  Report Type: Spontaneous
  Country: US (occurrence: US)
  Receive Date: 20161228
  Receipt Date: 20170106
  Transmission Date: 20170428
  Serious: Yes (Hospitalization, Other)
  Sender: FDA-Public Use
  Company Number: US-TEVA-722981USA

PATIENT
  Sex: Female
  Weight: 52 kg

DRUGS (1)
  1. CARBIDOPA AND LEVODOPA [Suspect]
     Active Substance: CARBIDOPA\LEVODOPA
     Indication: PARKINSON^S DISEASE
     Dosage: 25/250 MG
     Route: 065

REACTIONS (5)
  - Myalgia [Recovering/Resolving]
  - Tremor [Recovering/Resolving]
  - Seizure [Recovering/Resolving]
  - Muscle rigidity [Recovering/Resolving]
  - Feeling abnormal [Recovering/Resolving]
